FAERS Safety Report 4869184-5 (Version None)
Quarter: 2005Q4

REPORT INFORMATION
  Report Type: 
  Country: None (occurrence: None)
  Receive Date: 20051230
  Receipt Date: 20040412
  Transmission Date: 20060501
  Serious: Yes (Other)
  Sender: FDA-Public Use
  Company Number: PHBS2004CA04977

PATIENT
  Sex: Female

DRUGS (11)
  1. PREDNISONE TAB [Concomitant]
     Route: 065
  2. AMIODARONE [Concomitant]
     Route: 065
  3. L-THYROXIN ^HENNING BERLIN^ [Concomitant]
     Route: 065
  4. MORPHINE [Concomitant]
     Route: 065
  5. FOSINOPRIL [Concomitant]
     Route: 065
  6. SPIRONOLACTONE [Concomitant]
     Route: 065
  7. MELPHALAN [Concomitant]
     Route: 065
  8. CYCLOPHOSPHAMIDE [Concomitant]
     Route: 065
  9. CYCLOPHOSPHAMIDE [Concomitant]
     Dosage: 300 MG/D
     Route: 065
  10. CLINDAMYCIN [Concomitant]
     Route: 065
  11. PAMIDRONATE DISODIUM [Suspect]
     Indication: MULTIPLE MYELOMA

REACTIONS (14)
  - BONE DISORDER [None]
  - BREAST CANCER [None]
  - DEEP VEIN THROMBOSIS [None]
  - DENTURE WEARER [None]
  - HIP ARTHROPLASTY [None]
  - MALIGNANT BREAST LUMP REMOVAL [None]
  - MALIGNANT NEOPLASM PROGRESSION [None]
  - MOUTH ULCERATION [None]
  - ORAL PAIN [None]
  - OSTEOMYELITIS [None]
  - OSTEONECROSIS [None]
  - RADIOTHERAPY [None]
  - SURGERY [None]
  - TOOTH FRACTURE [None]
